FAERS Safety Report 18002598 (Version 1)
Quarter: 2020Q3

REPORT INFORMATION
  Report Type: Spontaneous
  Country: US (occurrence: US)
  Receive Date: 20200709
  Receipt Date: 20200709
  Transmission Date: 20201103
  Serious: No
  Sender: FDA-Public Use
  Company Number: US-ASTELLAS-2019US027187

PATIENT
  Sex: Male

DRUGS (3)
  1. MYRBETRIQ [Suspect]
     Active Substance: MIRABEGRON
     Dosage: UNK UNK, ONCE DAILY (SOMETIMES TAKES ONE TABLET ONCE DAILY AND SOMETIMES TAKES 2 TABLETS ONCE DAILY)
     Route: 048
  2. MYRBETRIQ [Suspect]
     Active Substance: MIRABEGRON
     Indication: PROSTATIC DISORDER
     Dosage: UNK UNK, ONCE DAILY (SOMETIMES TAKES ONE TABLET ONCE DAILY AND SOMETIMES TAKES 2 TABLETS ONCE DAILY)
     Route: 048
  3. PYRANTEL PAMOATE. [Concomitant]
     Active Substance: PYRANTEL PAMOATE
     Indication: PRODUCT USED FOR UNKNOWN INDICATION
     Dosage: UNK UNK, UNKNOWN FREQ.
     Route: 065

REACTIONS (4)
  - Treatment noncompliance [Unknown]
  - Inappropriate schedule of product administration [Unknown]
  - Enterobiasis [Unknown]
  - Product use in unapproved indication [Unknown]
